FAERS Safety Report 6884403-1 (Version None)
Quarter: 2010Q3

REPORT INFORMATION
  Report Type: 
  Country: None (occurrence: None)
  Receive Date: 20100729
  Receipt Date: 20031020
  Transmission Date: 20110219
  Serious: No
  Sender: FDA-Public Use
  Company Number: US-PFIZER INC-2007061164

PATIENT

DRUGS (3)
  1. CELEBREX [Suspect]
  2. VIOXX [Suspect]
  3. RANITIDINE HYDROCHLORIDE [Concomitant]

REACTIONS (1)
  - ABDOMINAL DISCOMFORT [None]
